FAERS Safety Report 25078032 (Version 2)
Quarter: 2025Q1

REPORT INFORMATION
  Report Type: Spontaneous
  Country: US (occurrence: US)
  Receive Date: 20250314
  Receipt Date: 20250327
  Transmission Date: 20250409
  Serious: Yes (Other)
  Sender: ALIMERA
  Company Number: US-ALIMERA SCIENCES INC.-US-A16013-25-000069

PATIENT
  Age: 66 Year
  Sex: Male

DRUGS (1)
  1. YUTIQ [Suspect]
     Active Substance: FLUOCINOLONE ACETONIDE
     Indication: Macular oedema
     Route: 031
     Dates: start: 20240701

REACTIONS (4)
  - Cystoid macular oedema [Unknown]
  - Visual acuity reduced [Unknown]
  - Off label use [Unknown]
  - Product administration error [Unknown]

NARRATIVE: CASE EVENT DATE: 20240701
